FAERS Safety Report 8504364-9 (Version None)
Quarter: 2012Q3

REPORT INFORMATION
  Report Type: 
  Country: None (occurrence: None)
  Receive Date: 20120711
  Receipt Date: 20120705
  Transmission Date: 20120928
  Serious: Yes (Hospitalization)
  Sender: FDA-Public Use
  Company Number: BR-B.I. PHARMACEUTICALS,INC./RIDGEFIELD-2012-BR-00731BR

PATIENT
  Sex: Female

DRUGS (3)
  1. GLYBURIDE [Concomitant]
     Indication: DIABETES MELLITUS
  2. PRADAXA [Suspect]
     Indication: PELVIC FRACTURE
     Dosage: 220 MG
     Route: 048
     Dates: start: 20120611, end: 20120629
  3. ATENOLOL [Concomitant]
     Indication: HYPERTENSION

REACTIONS (5)
  - DIABETES MELLITUS [None]
  - SKIN WOUND [None]
  - EXTERNAL EAR INFLAMMATION [None]
  - AGITATION [None]
  - SKIN MASS [None]
